FAERS Safety Report 9065100 (Version 2)
Quarter: 2015Q3

REPORT INFORMATION
  Report Type: Report from Study
  Country: IT (occurrence: IT)
  Receive Date: 20130128
  Receipt Date: 20150721
  Transmission Date: 20151125
  Serious: Yes (Death, Other)
  Sender: FDA-Public Use
  Company Number: PHHY2013IT007173

PATIENT
  Age: 59 Year
  Sex: Male

DRUGS (2)
  1. ZOMETA [Suspect]
     Active Substance: ZOLEDRONIC ACID
     Indication: RENAL CANCER
     Route: 065
     Dates: start: 20080601, end: 20120501
  2. ZOMETA [Suspect]
     Active Substance: ZOLEDRONIC ACID
     Indication: METASTASES TO BONE

REACTIONS (3)
  - Osteonecrosis of jaw [Not Recovered/Not Resolved]
  - Primary sequestrum [Not Recovered/Not Resolved]
  - Completed suicide [Fatal]

NARRATIVE: CASE EVENT DATE: 201209
